FAERS Safety Report 5731289-4 (Version None)
Quarter: 2008Q2

REPORT INFORMATION
  Report Type: 
  Country: None (occurrence: None)
  Receive Date: 20080505
  Receipt Date: 20080421
  Transmission Date: 20081010
  Serious: Yes (Hospitalization)
  Sender: FDA-Public Use
  Company Number: 02100-JPN-08-0102

PATIENT
  Age: 72 Year
  Sex: Female
  Weight: 60 kg

DRUGS (13)
  1. PLETAL [Suspect]
     Indication: CEREBRAL INFARCTION
     Dosage: 100 MG, BID, ORAL
     Route: 048
     Dates: start: 20060908, end: 20070322
  2. PLETAL [Suspect]
     Indication: CEREBRAL INFARCTION
  3. DEPAS (ETIZOLAM) TABLET [Concomitant]
  4. ROHYPNOL (FLUNITRAZEPAM) TABLET [Concomitant]
  5. RESLIN (TRAZODONE HYDROCHLORIDE) TABLET [Concomitant]
  6. BASEN OD (VOGLIBOSE) TABLET, 3 MG [Concomitant]
  7. GLAKAY (MENATETRENONE) CAPSULE, 15 MG [Concomitant]
  8. VOLTAREN [Concomitant]
  9. BONALON 5MG (ALENDRONATE SODIUM HYDRATE) TABLET [Concomitant]
  10. GLIMICRON (GLICLAZIDE) TABLET, 40 MG [Concomitant]
  11. GASTER D (FAMOTIDINE) TABLET, 20 MG [Concomitant]
  12. ACTOS (PIOGLITAZONE HYDROCHLORIDE) TABLET, 30 MG [Concomitant]
  13. NATEGLINIDE [Concomitant]

REACTIONS (8)
  - ABASIA [None]
  - ALOPECIA [None]
  - CEREBRAL INFARCTION [None]
  - GENERAL PHYSICAL HEALTH DETERIORATION [None]
  - NASOPHARYNGITIS [None]
  - PANCREATIC CARCINOMA METASTATIC [None]
  - PANCREATIC DUCT STENOSIS [None]
  - SENSATION OF HEAVINESS [None]
